FAERS Safety Report 25100396 (Version 1)
Quarter: 2025Q1

REPORT INFORMATION
  Report Type: Report from Study
  Country: GB (occurrence: GB)
  Receive Date: 20250320
  Receipt Date: 20250320
  Transmission Date: 20250409
  Serious: Yes (Other)
  Sender: ABBVIE
  Company Number: GB-ABBVIE-6181599

PATIENT
  Age: 35 Year
  Sex: Female

DRUGS (1)
  1. SKYRIZI [Suspect]
     Active Substance: RISANKIZUMAB-RZAA
     Indication: Crohn^s disease
     Route: 058
     Dates: start: 20240827

REACTIONS (15)
  - Stoma creation [Unknown]
  - Insomnia [Unknown]
  - Myringitis [Unknown]
  - Fatigue [Unknown]
  - Brain fog [Unknown]
  - Alopecia [Unknown]
  - Gastrointestinal stoma output increased [Unknown]
  - Headache [Unknown]
  - Rash macular [Unknown]
  - Herpes zoster [Unknown]
  - Facial pain [Unknown]
  - Tympanic membrane perforation [Unknown]
  - Scleritis [Unknown]
  - Ocular hyperaemia [Unknown]
  - Product lot number issue [Unknown]

NARRATIVE: CASE EVENT DATE: 20250101
